FAERS Safety Report 4931777-4 (Version None)
Quarter: 2006Q1

REPORT INFORMATION
  Report Type: 
  Country: None (occurrence: None)
  Receive Date: 20060303
  Receipt Date: 20060222
  Transmission Date: 20060701
  Serious: Yes (Hospitalization)
  Sender: FDA-Public Use
  Company Number: FR-AVENTIS-200610738FR

PATIENT
  Age: 59 Year
  Sex: Female

DRUGS (1)
  1. RILUTEK [Suspect]
     Indication: AMYOTROPHIC LATERAL SCLEROSIS
     Route: 048
     Dates: start: 20050430, end: 20050510

REACTIONS (5)
  - ARTHRALGIA [None]
  - CYTOLYTIC HEPATITIS [None]
  - HEPATITIS [None]
  - MYALGIA [None]
  - PYREXIA [None]
